FAERS Safety Report 4562343-0 (Version None)
Quarter: 2005Q1

REPORT INFORMATION
  Report Type: 
  Country: None (occurrence: None)
  Receive Date: 20050127
  Receipt Date: 20041018
  Transmission Date: 20050727
  Serious: No
  Sender: FDA-Public Use
  Company Number: US-BRISTOL-MYERS SQUIBB COMPANY-12735502

PATIENT
  Age: 56 Year
  Sex: Male

DRUGS (1)
  1. PARAPLATIN AQ [Suspect]
     Route: 042

REACTIONS (3)
  - FEELING HOT [None]
  - FLUSHING [None]
  - RASH [None]
